FAERS Safety Report 4850914-3 (Version None)
Quarter: 2005Q4

REPORT INFORMATION
  Report Type: 
  Country: None (occurrence: None)
  Receive Date: 20051212
  Receipt Date: 20051102
  Transmission Date: 20060501
  Serious: Yes (Other)
  Sender: FDA-Public Use
  Company Number: DE-GLAXOSMITHKLINE-D0047913A

PATIENT
  Age: 65 Year
  Sex: Male
  Weight: 86 kg

DRUGS (3)
  1. ELMENDOS [Suspect]
     Indication: BIPOLAR DISORDER
     Dosage: 100MG PER DAY
     Route: 048
     Dates: start: 20050718, end: 20050101
  2. CLOMIPRAMINE [Concomitant]
     Dosage: 25MG IN THE MORNING
     Route: 065
  3. DOXEPIN HCL [Concomitant]
     Dosage: 37.5MG PER DAY
     Route: 065

REACTIONS (1)
  - PSORIASIS [None]
